FAERS Safety Report 7788045-5 (Version None)
Quarter: 2011Q3

REPORT INFORMATION
  Report Type: 
  Country: None (occurrence: None)
  Receive Date: 20110927
  Receipt Date: 20110914
  Transmission Date: 20111222
  Serious: Yes (Hospitalization)
  Sender: FDA-Public Use
  Company Number: MC201100241

PATIENT
  Age: 81 Year
  Sex: Female

DRUGS (11)
  1. NITROGLYCERIN SPRAY [Concomitant]
  2. ANGIOMAX [Suspect]
     Indication: ANGIOPLASTY
     Dosage: 10.5; 24.5  ML, BOLUS, INTRAVENOUS
     Route: 042
     Dates: start: 20110501
  3. GINKOR FORT (GINKGO BILOBA, HEPTAMINOL HYDROCHLORIDE, TROXERUTIN) [Concomitant]
  4. DEXERYL (GLYCEROL, PARAFFIN, LIQUID, WHITE SOLFT PARAFFIN) [Concomitant]
  5. SPIRONOLACTONE [Concomitant]
  6. ASPEGIC (ACETYLSALICYLATE LYSINE, AMINOACETIC ACID) [Concomitant]
  7. KARDEGIC (ACETYLSALICYLATE LYSINE, ACETYLSALICYLIC ACID) [Concomitant]
  8. MORPHINE [Concomitant]
  9. FIXICAL (CALCIUM CARBONATE) [Concomitant]
  10. ACETAMINOPHEN [Concomitant]
  11. MUPIDERM (MUPIROCIN) [Concomitant]

REACTIONS (13)
  - ACTIVATED PARTIAL THROMBOPLASTIN TIME PROLONGED [None]
  - NEUTROPHIL COUNT INCREASED [None]
  - GAMMA-GLUTAMYLTRANSFERASE INCREASED [None]
  - BLOOD CREATINE PHOSPHOKINASE MB INCREASED [None]
  - PROTHROMBIN LEVEL DECREASED [None]
  - TROPONIN INCREASED [None]
  - PROTHROMBIN TIME PROLONGED [None]
  - ALANINE AMINOTRANSFERASE INCREASED [None]
  - ASPARTATE AMINOTRANSFERASE INCREASED [None]
  - WHITE BLOOD CELL COUNT INCREASED [None]
  - BLOOD CREATINE PHOSPHOKINASE INCREASED [None]
  - COAGULATION FACTOR V LEVEL DECREASED [None]
  - COAGULOPATHY [None]
